FAERS Safety Report 9648703 (Version 1)
Quarter: 2013Q4

REPORT INFORMATION
  Report Type: Spontaneous
  Country: US (occurrence: US)
  Receive Date: 20131028
  Receipt Date: 20131028
  Transmission Date: 20140711
  Serious: No
  Sender: FDA-Public Use
  Company Number: US-MYLANLABS-2013S1019363

PATIENT
  Age: 61 Year
  Sex: Female
  Weight: 76.2 kg

DRUGS (5)
  1. RISPERIDONE TABLETS USP [Suspect]
     Route: 048
     Dates: start: 201308
  2. CARVEDILOL [Concomitant]
     Route: 048
  3. DIOVAN [Concomitant]
     Indication: BLOOD PRESSURE INCREASED
     Route: 048
  4. METFORMIN [Concomitant]
     Indication: DIABETES MELLITUS
     Route: 048
  5. TEMAZEPAM [Concomitant]
     Route: 048

REACTIONS (1)
  - Alopecia [Not Recovered/Not Resolved]
